FAERS Safety Report 7842533-1 (Version None)
Quarter: 2011Q4

REPORT INFORMATION
  Report Type: 
  Country: None (occurrence: None)
  Receive Date: 20111025
  Receipt Date: 20111019
  Transmission Date: 20120403
  Serious: Yes (Other)
  Sender: FDA-Public Use
  Company Number: CH-UCBSA-041602

PATIENT
  Age: 48 Year
  Sex: Female

DRUGS (2)
  1. CIMZIA [Suspect]
     Indication: CROHN'S DISEASE
     Route: 058
     Dates: start: 20110101
  2. AZAREK [Concomitant]
     Indication: CROHN'S DISEASE
     Route: 048

REACTIONS (7)
  - ANAL ABSCESS [None]
  - ASTHENIA [None]
  - PYREXIA [None]
  - FATIGUE [None]
  - INCORRECT STORAGE OF DRUG [None]
  - CROHN'S DISEASE [None]
  - GENERAL PHYSICAL HEALTH DETERIORATION [None]
